FAERS Safety Report 7685471-X (Version None)
Quarter: 2011Q3

REPORT INFORMATION
  Report Type: 
  Country: None (occurrence: None)
  Receive Date: 20110815
  Receipt Date: 20110815
  Transmission Date: 20111222
  Serious: Yes (Other)
  Sender: FDA-Public Use
  Company Number: None

PATIENT
  Sex: Female
  Weight: 90.7194 kg

DRUGS (1)
  1. SYNTHROID [Suspect]
     Indication: HYPOTHYROIDISM
     Dosage: 0.075 MG 1 PER DAY
     Dates: start: 20110721

REACTIONS (3)
  - REACTION TO DRUG EXCIPIENTS [None]
  - MALAISE [None]
  - THERAPY REGIMEN CHANGED [None]
